FAERS Safety Report 16097031 (Version 2)
Quarter: 2019Q1

REPORT INFORMATION
  Report Type: Spontaneous
  Country: ZA (occurrence: ZA)
  Receive Date: 20190320
  Receipt Date: 20190329
  Transmission Date: 20190418
  Serious: Yes (Other)
  Sender: FDA-Public Use
  Company Number: ZA-ROCHE-2286669

PATIENT
  Sex: Male
  Weight: 117 kg

DRUGS (2)
  1. AVASTIN [Suspect]
     Active Substance: BEVACIZUMAB
     Indication: PROSTATE CANCER
     Route: 065
  2. XELODA [Suspect]
     Active Substance: CAPECITABINE
     Indication: PROSTATE CANCER
     Route: 065

REACTIONS (3)
  - Malignant melanoma [Unknown]
  - Limb injury [Unknown]
  - Ulcer [Unknown]

NARRATIVE: CASE EVENT DATE: 2013
